FAERS Safety Report 18202483 (Version 1)
Quarter: 2020Q3

REPORT INFORMATION
  Report Type: Spontaneous
  Country: US (occurrence: US)
  Receive Date: 20200827
  Receipt Date: 20200827
  Transmission Date: 20201103
  Serious: No
  Sender: FDA-Public Use
  Company Number: None

PATIENT
  Age: 43 Year
  Sex: Male
  Weight: 139.5 kg

DRUGS (9)
  1. MIDAZOLAM. [Concomitant]
     Active Substance: MIDAZOLAM
     Dates: start: 20200819, end: 20200819
  2. ACETAMINOPHEN. [Concomitant]
     Active Substance: ACETAMINOPHEN
     Dates: start: 20200819, end: 20200819
  3. MORPHINE [Concomitant]
     Active Substance: MORPHINE
     Dates: start: 20200819, end: 20200819
  4. OXYCODONE [Concomitant]
     Active Substance: OXYCODONE
     Dates: start: 20200819, end: 20200819
  5. CEFAZOLIN [Concomitant]
     Active Substance: CEFAZOLIN
     Dates: start: 20200819, end: 20200819
  6. KETAMINE [Concomitant]
     Active Substance: KETAMINE
     Dates: start: 20200819, end: 20200819
  7. ROCURONIUM [Suspect]
     Active Substance: ROCURONIUM BROMIDE
     Indication: SURGERY
     Route: 040
  8. METOPROLOL TARTRATE. [Concomitant]
     Active Substance: METOPROLOL TARTRATE
     Dates: start: 20200819, end: 20200819
  9. BUPIVACAINE. [Concomitant]
     Active Substance: BUPIVACAINE
     Dates: start: 20200819, end: 20200819

REACTIONS (1)
  - Therapeutic product effect decreased [None]

NARRATIVE: CASE EVENT DATE: 20200819
